FAERS Safety Report 15608768 (Version 1)
Quarter: 2018Q4

REPORT INFORMATION
  Report Type: Spontaneous
  Country: US (occurrence: US)
  Receive Date: 20181112
  Receipt Date: 20181112
  Transmission Date: 20190205
  Serious: Yes (Disabling)
  Sender: FDA-Public Use
  Company Number: None

PATIENT
  Age: 74 Year
  Sex: Male
  Weight: 60.75 kg

DRUGS (14)
  1. HYDORCLOROTHIAZIDE [Concomitant]
  2. VITAMIN B [Concomitant]
     Active Substance: VITAMIN B
  3. VITAMIN D3 [Concomitant]
     Active Substance: CHOLECALCIFEROL
  4. OLIVE LEAF [Concomitant]
  5. CALCIUM [Concomitant]
     Active Substance: CALCIUM
  6. LOSARTAN. [Concomitant]
     Active Substance: LOSARTAN
  7. VITAMIN B12 [Concomitant]
     Active Substance: CYANOCOBALAMIN
  8. MAGNESIUM [Concomitant]
     Active Substance: MAGNESIUM
  9. COQ10 [Concomitant]
     Active Substance: UBIDECARENONE
  10. DUTASTERIDE. [Suspect]
     Active Substance: DUTASTERIDE
     Indication: BENIGN PROSTATIC HYPERPLASIA
     Dosage: ?          QUANTITY:1 CAPSULE(S);OTHER FREQUENCY:3X/WK;OTHER ROUTE:ORALLY?
     Route: 048
     Dates: end: 20181112
  11. PROGESTERONE. [Concomitant]
     Active Substance: PROGESTERONE
  12. VITAMIN C [Concomitant]
     Active Substance: ASCORBIC ACID
  13. E-5400 K2 [Concomitant]
  14. NIACIN. [Concomitant]
     Active Substance: NIACIN

REACTIONS (3)
  - Loss of libido [None]
  - Ejaculation failure [None]
  - Anorgasmia [None]

NARRATIVE: CASE EVENT DATE: 20181112
